FAERS Safety Report 9162159 (Version 1)
Quarter: 2013Q1

REPORT INFORMATION
  Report Type: Spontaneous
  Country: IT (occurrence: None)
  Receive Date: 20130222
  Receipt Date: 20130222
  Transmission Date: 20140127
  Serious: Yes (Hospitalization)
  Sender: FDA-Public Use
  Company Number: AUR-APL-2013-01459

PATIENT
  Age: 15 Year
  Sex: Male

DRUGS (4)
  1. AMOXICILLIN CLAVULANIC ACID [Suspect]
     Indication: TONSILLITIS
     Dosage: 2 GM (2 GM, 1 IN 1 D), ORAL?
     Route: 048
     Dates: start: 20121117, end: 20121120
  2. CLARITHROMYCIN (CLARITHROMYCIN) [Suspect]
     Route: 048
     Dates: start: 20121121, end: 20121121
  3. ROCEFIN [Suspect]
     Dosage: 1 GM (1 GM, 1 IN 1 D), INTRAMUSCULAR
     Route: 030
     Dates: start: 20121122, end: 20121123
  4. PARACETAMOL (PARACETAMOL) [Concomitant]

REACTIONS (1)
  - Rash maculo-papular [None]
